FAERS Safety Report 17614811 (Version 1)
Quarter: 2020Q2

REPORT INFORMATION
  Report Type: Spontaneous
  Country: ES (occurrence: ES)
  Receive Date: 20200402
  Receipt Date: 20200402
  Transmission Date: 20200713
  Serious: Yes (Death)
  Sender: FDA-Public Use
  Company Number: ES-TEVA-2020-ES-1215256

PATIENT
  Age: 59 Year
  Sex: Male

DRUGS (4)
  1. OXALIPLATINO (7351A) [Suspect]
     Active Substance: OXALIPLATIN
     Route: 042
     Dates: start: 20200310
  2. PANITUMUMAB (8108A) [Suspect]
     Active Substance: PANITUMUMAB
     Route: 042
     Dates: start: 20200310
  3. FLUOROURACILO (272A) [Suspect]
     Active Substance: FLUOROURACIL
     Route: 042
     Dates: start: 20200310
  4. FOLINATO CALCIO (1587CO) [Concomitant]
     Active Substance: LEUCOVORIN CALCIUM
     Route: 042
     Dates: start: 20200310

REACTIONS (2)
  - Cardio-respiratory arrest [Fatal]
  - Syncope [Fatal]

NARRATIVE: CASE EVENT DATE: 20200310
